FAERS Safety Report 17584008 (Version 3)
Quarter: 2021Q4

REPORT INFORMATION
  Report Type: Spontaneous
  Country: CA (occurrence: None)
  Receive Date: 20200326
  Receipt Date: 20211228
  Transmission Date: 20220303
  Serious: Yes (Life-Threatening, Hospitalization)
  Sender: FDA-Public Use
  Company Number: CA-ROCHE-2570298

PATIENT
  Age: 16 Year
  Sex: Male

DRUGS (23)
  1. MYCOPHENOLATE MOFETIL [Suspect]
     Active Substance: MYCOPHENOLATE MOFETIL
     Indication: Immunosuppressant drug therapy
     Route: 065
  2. MYCOPHENOLATE MOFETIL [Suspect]
     Active Substance: MYCOPHENOLATE MOFETIL
     Indication: Renal transplant
     Route: 065
  3. MYCOPHENOLATE MOFETIL [Suspect]
     Active Substance: MYCOPHENOLATE MOFETIL
     Indication: Prophylaxis against transplant rejection
     Route: 065
  4. MYCOPHENOLATE MOFETIL [Suspect]
     Active Substance: MYCOPHENOLATE MOFETIL
     Route: 065
  5. BASILIXIMAB [Suspect]
     Active Substance: BASILIXIMAB
     Indication: Immunosuppressant drug therapy
     Route: 065
  6. METHYLPREDNISOLONE [Suspect]
     Active Substance: METHYLPREDNISOLONE
     Indication: Immunosuppressant drug therapy
     Route: 065
  7. METHYLPREDNISOLONE [Suspect]
     Active Substance: METHYLPREDNISOLONE
     Indication: Renal transplant
     Route: 065
  8. PREDNISONE [Suspect]
     Active Substance: PREDNISONE
     Indication: Immunosuppressant drug therapy
     Route: 048
  9. PREDNISONE [Suspect]
     Active Substance: PREDNISONE
     Indication: Renal transplant
     Route: 048
  10. TACROLIMUS [Suspect]
     Active Substance: TACROLIMUS
     Indication: Immunosuppressant drug therapy
     Route: 065
  11. AMPHOTERICIN B [Suspect]
     Active Substance: AMPHOTERICIN B
     Indication: Fungal infection
     Route: 041
  12. AMPHOTERICIN B [Suspect]
     Active Substance: AMPHOTERICIN B
     Indication: Mucormycosis
     Route: 042
  13. SIMULECT [Suspect]
     Active Substance: BASILIXIMAB
     Indication: Immunosuppressant drug therapy
     Dosage: TOTAL
     Route: 065
  14. SIMULECT [Suspect]
     Active Substance: BASILIXIMAB
     Indication: Renal transplant
     Route: 065
  15. ACETAMINOPHEN [Concomitant]
     Active Substance: ACETAMINOPHEN
     Indication: Premedication
  16. CEPHALEXIN [Concomitant]
     Active Substance: CEPHALEXIN
     Indication: Cellulitis
  17. DIPHENHYDRAMINE [Concomitant]
     Active Substance: DIPHENHYDRAMINE
     Indication: Premedication
  18. POSACONAZOLE [Concomitant]
     Active Substance: POSACONAZOLE
     Indication: Premedication
  19. AMPHOTERICIN B [Concomitant]
     Active Substance: AMPHOTERICIN B
     Indication: Fungal infection
  20. INSULIN NOS [Concomitant]
     Active Substance: INSULIN NOS
  21. DOXORUBICIN HYDROCHLORIDE [Concomitant]
     Active Substance: DOXORUBICIN HYDROCHLORIDE
  22. METHYLPREDNISOLONE [Concomitant]
     Active Substance: METHYLPREDNISOLONE
  23. POSACONAZOLE [Concomitant]
     Active Substance: POSACONAZOLE

REACTIONS (19)
  - Chest discomfort [Recovered/Resolved]
  - Flushing [Recovered/Resolved]
  - Graft complication [Recovered/Resolved]
  - Hyperglycaemia [Recovered/Resolved]
  - Hypotension [Recovered/Resolved]
  - Mucormycosis [Recovered/Resolved]
  - Polyomavirus-associated nephropathy [Recovered/Resolved]
  - Renal injury [Recovered/Resolved]
  - Renal tubular necrosis [Recovered/Resolved]
  - Skin infection [Recovered/Resolved]
  - Tachycardia [Recovered/Resolved]
  - Skin necrosis [Recovered/Resolved]
  - Nephropathy toxic [Recovered/Resolved]
  - Fungal skin infection [Recovered/Resolved]
  - Device related infection [Recovered/Resolved]
  - Cellulitis [Recovered/Resolved]
  - Overdose [Unknown]
  - Catheter site infection [Recovered/Resolved]
  - Toxicity to various agents [Recovered/Resolved]
